FAERS Safety Report 6022810-X (Version None)
Quarter: 2008Q4

REPORT INFORMATION
  Report Type: 
  Country: None (occurrence: None)
  Receive Date: 20081223
  Receipt Date: 20081218
  Transmission Date: 20090506
  Serious: Yes (Hospitalization)
  Sender: FDA-Public Use
  Company Number: 6047779

PATIENT
  Age: 68 Year
  Sex: Female

DRUGS (1)
  1. LODOZ(5 MG, TABLET) (HYDROCHLOROTHIAZIDE, BISOPROLOL FUMARATE) [Suspect]
     Indication: DRUG USE FOR UNKNOWN INDICATION
     Dosage: (5 MG)
     Route: 048

REACTIONS (2)
  - DISCOMFORT [None]
  - FATIGUE [None]
